FAERS Safety Report 6116362-3 (Version None)
Quarter: 2009Q1

REPORT INFORMATION
  Report Type: 
  Country: None (occurrence: None)
  Receive Date: 20090314
  Receipt Date: 20081219
  Transmission Date: 20090719
  Serious: No
  Sender: FDA-Public Use
  Company Number: US-ABBOTT-08P-163-0493974-00

PATIENT
  Sex: Female
  Weight: 54.48 kg

DRUGS (10)
  1. HUMIRA [Suspect]
     Indication: INFERTILITY
     Route: 058
     Dates: start: 20081016, end: 20081113
  2. HUMIRA [Suspect]
     Indication: NATURAL KILLER CELL COUNT INCREASED
     Dates: start: 20081202
  3. LUPRON [Suspect]
     Indication: INFERTILITY
     Dosage: 1 INJECTION
     Route: 058
     Dates: start: 20081029, end: 20081101
  4. HCG INJECTION [Concomitant]
     Indication: INFERTILITY
     Dates: start: 20081101, end: 20081101
  5. BRAVELLE [Concomitant]
     Indication: INFERTILITY
  6. CALCIUM [Concomitant]
     Indication: MINERAL SUPPLEMENTATION
  7. ASPIRIN [Concomitant]
     Indication: INFERTILITY
  8. FOLIC ACID [Concomitant]
     Indication: VITAMIN SUPPLEMENTATION
  9. MEDROL [Concomitant]
     Indication: INFERTILITY
  10. ANCEF [Concomitant]
     Indication: ANTIBIOTIC PROPHYLAXIS
     Route: 042
     Dates: start: 20081125, end: 20081125

REACTIONS (5)
  - ERYTHEMA [None]
  - INJECTION SITE REACTION [None]
  - PRURITUS [None]
  - SWELLING [None]
  - UTERINE POLYP [None]
